FAERS Safety Report 4908962-0 (Version None)
Quarter: 2006Q1

REPORT INFORMATION
  Report Type: 
  Country: None (occurrence: None)
  Receive Date: 20060209
  Receipt Date: 20060128
  Transmission Date: 20060701
  Serious: Yes (Other)
  Sender: FDA-Public Use
  Company Number: 2006014669

PATIENT
  Age: 17 Year
  Sex: Male
  Weight: 72.5755 kg

DRUGS (1)
  1. BENADRYL [Suspect]
     Indication: MALAISE
     Dosage: 24 ULTRATABS ONCE, ORAL
     Route: 048
     Dates: start: 20060127, end: 20060127

REACTIONS (4)
  - DEPRESSION [None]
  - DISORIENTATION [None]
  - HALLUCINATION [None]
  - MALAISE [None]
